FAERS Safety Report 13166043 (Version 1)
Quarter: 2017Q1

REPORT INFORMATION
  Report Type: Spontaneous
  Country: FR (occurrence: FR)
  Receive Date: 20170131
  Receipt Date: 20170131
  Transmission Date: 20170428
  Serious: Yes (Death)
  Sender: FDA-Public Use
  Company Number: FR-ROCHE-1885441

PATIENT
  Age: 84 Year
  Sex: Female

DRUGS (16)
  1. DEPAKINE [Suspect]
     Active Substance: VALPROATE SODIUM
     Indication: STATUS EPILEPTICUS
     Route: 048
     Dates: start: 20170113
  2. DOLIPRANE [Concomitant]
     Active Substance: ACETAMINOPHEN
  3. PIPERACILLIN SODIUM [Suspect]
     Active Substance: PIPERACILLIN SODIUM
     Indication: PRODUCT USED FOR UNKNOWN INDICATION
     Route: 041
     Dates: start: 20170106, end: 20170112
  4. ISOPHANE INSULIN [Concomitant]
     Active Substance: INSULIN NOS
  5. LANSOPRAZOLE. [Concomitant]
     Active Substance: LANSOPRAZOLE
     Route: 065
  6. ALPRAZOLAM. [Concomitant]
     Active Substance: ALPRAZOLAM
     Route: 065
  7. GANFORT [Concomitant]
     Active Substance: BIMATOPROST\TIMOLOL
  8. AUGMENTIN [Concomitant]
     Active Substance: AMOXICILLIN\CLAVULANATE POTASSIUM
     Route: 042
     Dates: start: 20161006
  9. TAMIFLU [Suspect]
     Active Substance: OSELTAMIVIR PHOSPHATE
     Indication: INFLUENZA
     Route: 048
     Dates: start: 20170112
  10. ROCEPHINE [Concomitant]
     Active Substance: CEFTRIAXONE SODIUM
     Route: 065
     Dates: start: 20161006
  11. TAZOBACTAM SODIUM [Suspect]
     Active Substance: TAZOBACTAM SODIUM
     Indication: PRODUCT USED FOR UNKNOWN INDICATION
     Route: 042
     Dates: start: 20170106, end: 20170112
  12. COLLYRIUM (UNK INGREDIENTS) [Concomitant]
  13. LEVOTHYROX [Concomitant]
     Active Substance: LEVOTHYROXINE
     Dosage: 125 MCG AND 150 MCG ALTERNATELY
     Route: 065
  14. VALSARTAN. [Concomitant]
     Active Substance: VALSARTAN
     Dosage: 1/2 TABLET/DAY
     Route: 065
  15. NOVORAPID [Concomitant]
     Active Substance: INSULIN ASPART
  16. FLAGYL [Concomitant]
     Active Substance: METRONIDAZOLE\METRONIDAZOLE HYDROCHLORIDE
     Route: 042
     Dates: start: 20161006

REACTIONS (5)
  - Hypertonia [Fatal]
  - Disturbance in attention [Fatal]
  - Trismus [Fatal]
  - Clonus [Fatal]
  - Choreoathetosis [Fatal]

NARRATIVE: CASE EVENT DATE: 20170113
